FAERS Safety Report 18621713 (Version 2)
Quarter: 2020Q4

REPORT INFORMATION
  Report Type: Spontaneous
  Country: DE (occurrence: DE)
  Receive Date: 20201216
  Receipt Date: 20201216
  Transmission Date: 20210114
  Serious: Yes (Death, Other)
  Sender: FDA-Public Use
  Company Number: DE-BION-009304

PATIENT
  Age: 25 Year
  Sex: Female
  Weight: 75 kg

DRUGS (6)
  1. METHYLPHENIDATE. [Suspect]
     Active Substance: METHYLPHENIDATE
  2. NITRAZEPAM [Suspect]
     Active Substance: NITRAZEPAM
  3. MODAFINIL. [Suspect]
     Active Substance: MODAFINIL
  4. GABAPENTIN. [Suspect]
     Active Substance: GABAPENTIN
  5. AMPHETAMINE SULFATE. [Suspect]
     Active Substance: AMPHETAMINE SULFATE
  6. ALPRAZOLAM. [Suspect]
     Active Substance: ALPRAZOLAM

REACTIONS (3)
  - Delirium [Fatal]
  - Cardiac arrest [Fatal]
  - Drug abuse [Fatal]
